FAERS Safety Report 6936832-5 (Version None)
Quarter: 2010Q3

REPORT INFORMATION
  Report Type: 
  Country: None (occurrence: None)
  Receive Date: 20100818
  Receipt Date: 20100809
  Transmission Date: 20110219
  Serious: Yes (Hospitalization)
  Sender: FDA-Public Use
  Company Number: IPC201008-000245

PATIENT
  Age: 42 Year
  Sex: Male

DRUGS (7)
  1. FUROSEMIDE [Suspect]
     Dosage: 30 MG
  2. EZETIMIBE/SIMVASTATIN [Suspect]
     Indication: DYSLIPIDAEMIA
     Dosage: 10MG/20MG
  3. INSULIN LISPRO AND INSULIN GLARGINE [Suspect]
     Dosage: TOTAL 72 U
  4. RAMIPRIL [Suspect]
     Dosage: 10MG
  5. GABAPENTIN [Suspect]
     Dosage: 300 MG
  6. ASPIRIN [Suspect]
     Dosage: 100 MG
  7. ALLOPURINOL [Suspect]
     Dosage: 300MG

REACTIONS (5)
  - ASTHENIA [None]
  - GAIT DISTURBANCE [None]
  - NEUROPATHY PERIPHERAL [None]
  - RENAL FAILURE ACUTE [None]
  - RHABDOMYOLYSIS [None]
